FAERS Safety Report 19354080 (Version 3)
Quarter: 2021Q4

REPORT INFORMATION
  Report Type: Report from Study
  Country: KR (occurrence: KR)
  Receive Date: 20210602
  Receipt Date: 20211122
  Transmission Date: 20220303
  Serious: Yes (Hospitalization, Other)
  Sender: FDA-Public Use
  Company Number: KR-KYOWAKIRIN-2021AKK008929

PATIENT
  Age: 69 Year
  Sex: Female

DRUGS (7)
  1. FILGRASTIM [Suspect]
     Active Substance: FILGRASTIM
     Indication: Product used for unknown indication
     Dosage: UNK
     Route: 065
     Dates: start: 20191006, end: 20191007
  2. CEFEPIME [Concomitant]
     Active Substance: CEFEPIME HYDROCHLORIDE
     Indication: Product used for unknown indication
     Dosage: UNK
     Dates: start: 20191004, end: 20191022
  3. URSODIOL [Concomitant]
     Active Substance: URSODIOL
     Indication: Product used for unknown indication
     Dosage: UNK
     Dates: start: 20190919
  4. HUMAN IMMUNOGLOBULIN G [Concomitant]
     Active Substance: HUMAN IMMUNOGLOBULIN G
     Indication: Product used for unknown indication
     Dosage: 30000 MILLIGRAM
     Dates: start: 20191006, end: 20191006
  5. HUMAN IMMUNOGLOBULIN G [Concomitant]
     Active Substance: HUMAN IMMUNOGLOBULIN G
     Dosage: 20000 MILLIGRAM
     Dates: start: 20191007, end: 20191007
  6. VARIOUS ALIMENTARY TRACT AND METABOLISM PRODUCTS [Concomitant]
     Indication: Product used for unknown indication
     Dosage: UNK
     Dates: start: 20191007, end: 20191011
  7. BILE THERAPY [Concomitant]
     Indication: Product used for unknown indication
     Dosage: UNK
     Dates: start: 20190919

REACTIONS (1)
  - Cholangitis [Recovered/Resolved]

NARRATIVE: CASE EVENT DATE: 20191027
